FAERS Safety Report 10838119 (Version 1)
Quarter: 2015Q1

REPORT INFORMATION
  Report Type: Report from Study
  Country: US (occurrence: US)
  Receive Date: 20150219
  Receipt Date: 20150219
  Transmission Date: 20150721
  Serious: No
  Sender: FDA-Public Use
  Company Number: US-ABBVIE-14P-163-1224291-00

PATIENT
  Age: 43 Year
  Sex: Male

DRUGS (5)
  1. HUMIRA [Suspect]
     Active Substance: ADALIMUMAB
     Dates: start: 20140207
  2. HUMIRA [Suspect]
     Active Substance: ADALIMUMAB
     Dates: start: 20131224, end: 20131224
  3. HUMIRA [Suspect]
     Active Substance: ADALIMUMAB
     Indication: CROHN^S DISEASE
     Dates: start: 20131209, end: 20131209
  4. RANITIDINE [Concomitant]
     Active Substance: RANITIDINE\RANITIDINE HYDROCHLORIDE
     Indication: GASTROOESOPHAGEAL REFLUX DISEASE
  5. UNKNOWN BLOOD PRESSURE MEDICATION [Suspect]
     Active Substance: UNSPECIFIED INGREDIENT
     Indication: BLOOD PRESSURE

REACTIONS (18)
  - Dizziness [Unknown]
  - Fatigue [Not Recovered/Not Resolved]
  - Asthenia [Recovered/Resolved]
  - Tinnitus [Not Recovered/Not Resolved]
  - Malaise [Recovered/Resolved]
  - Drug dose omission [Unknown]
  - Flatulence [Unknown]
  - Muscle spasms [Recovered/Resolved]
  - Head discomfort [Recovered/Resolved]
  - Dizziness [Recovered/Resolved]
  - Hyperhidrosis [Recovered/Resolved]
  - Heart rate increased [Recovered/Resolved]
  - Inappropriate schedule of drug administration [Recovered/Resolved]
  - Inappropriate schedule of drug administration [Recovered/Resolved]
  - Feeling abnormal [Unknown]
  - Vomiting [Recovered/Resolved]
  - Rash [Unknown]
  - Nausea [Recovered/Resolved]

NARRATIVE: CASE EVENT DATE: 2013
